FAERS Safety Report 9808332 (Version 1)
Quarter: 2014Q1

REPORT INFORMATION
  Report Type: Spontaneous
  Country: US (occurrence: None)
  Receive Date: 20140108
  Receipt Date: 20140108
  Transmission Date: 20141002
  Serious: Yes (Other)
  Sender: FDA-Public Use
  Company Number: KAD201312-001811

PATIENT
  Age: 61 Year
  Sex: Female

DRUGS (3)
  1. RIBAVIRIN (RIBAVIRIN) [Suspect]
     Indication: HEPATITIS C
  2. PEGINTERFERON ALFA [Suspect]
     Indication: HEPATITIS C
  3. ROMIPLOSTIM [Suspect]
     Indication: THROMBOCYTOPENIA

REACTIONS (2)
  - Pancytopenia [None]
  - Bone marrow failure [None]
